FAERS Safety Report 7401134-X (Version None)
Quarter: 2011Q2

REPORT INFORMATION
  Report Type: 
  Country: None (occurrence: None)
  Receive Date: 20110407
  Receipt Date: 20110406
  Transmission Date: 20111010
  Serious: Yes (Hospitalization)
  Sender: FDA-Public Use
  Company Number: US-ABBOTT-11P-163-0712028-00

PATIENT
  Sex: Female
  Weight: 112.1 kg

DRUGS (9)
  1. SENSIPAR [Concomitant]
     Indication: DIALYSIS
  2. SERTRALINE HYDROCHLORIDE [Concomitant]
     Indication: DEPRESSION
  3. SIMVASTATIN [Concomitant]
     Indication: BLOOD CHOLESTEROL INCREASED
  4. OMEPRAZOLE [Concomitant]
     Indication: GASTROOESOPHAGEAL REFLUX DISEASE
  5. FLUTICASONE PROPIONATE W/SALMETEROL XINAFOATE [Concomitant]
     Indication: PRODUCT USED FOR UNKNOWN INDICATION
     Dosage: 1- 500/50MG PUFF DAILY
     Route: 055
  6. PREDNISONE [Suspect]
     Indication: HORMONE REPLACEMENT THERAPY
     Dates: start: 20010905
  7. AVAPRO [Concomitant]
     Indication: HYPERTENSION
  8. SYNTHROID [Suspect]
     Indication: HORMONE REPLACEMENT THERAPY
     Route: 048
     Dates: start: 20010905
  9. GENOTROPIN [Suspect]
     Indication: HYPOPITUITARISM
     Route: 051
     Dates: start: 20010905, end: 20110201

REACTIONS (1)
  - PITUITARY TUMOUR RECURRENT [None]
